FAERS Safety Report 22054899 (Version 1)
Quarter: 2023Q1

REPORT INFORMATION
  Report Type: Spontaneous
  Country: DE (occurrence: DE)
  Receive Date: 20230302
  Receipt Date: 20230302
  Transmission Date: 20230417
  Serious: Yes (Other)
  Sender: FDA-Public Use
  Company Number: DE-PROCTER+GAMBLE-PH23000670

PATIENT
  Age: 69 Year
  Sex: Male

DRUGS (8)
  1. PANTOPRAZOLE [Suspect]
     Active Substance: PANTOPRAZOLE
     Dosage: 8 DOSAGE FORM
     Route: 048
     Dates: start: 20230118, end: 20230118
  2. INDAPAMIDE [Suspect]
     Active Substance: INDAPAMIDE
     Dosage: 19 DOSAGE FORM
     Route: 048
     Dates: start: 20230118, end: 20230118
  3. HERBALS [Suspect]
     Active Substance: HERBALS
     Dosage: 8 DOSAGE FORM
     Route: 048
     Dates: start: 20230118, end: 20230118
  4. ALCOHOL [Suspect]
     Active Substance: ALCOHOL
     Dosage: UNK
     Route: 048
     Dates: start: 20230118, end: 20230118
  5. JANUMET [Suspect]
     Active Substance: METFORMIN HYDROCHLORIDE\SITAGLIPTIN PHOSPHATE
     Dosage: UNK
     Route: 048
     Dates: start: 20230118, end: 20230118
  6. ACETAMINOPHEN\DIPHENHYDRAMINE HYDROCHLORIDE\PSEUDOEPHEDRINE HYDROCHLOR [Suspect]
     Active Substance: ACETAMINOPHEN\DIPHENHYDRAMINE HYDROCHLORIDE\PSEUDOEPHEDRINE HYDROCHLORIDE
     Dosage: UNK
     Route: 048
     Dates: start: 20230118, end: 20230118
  7. METOPROLOL [Suspect]
     Active Substance: METOPROLOL
     Dosage: 4 DOSAGE FORM
     Route: 048
     Dates: start: 20230118, end: 20230118
  8. METAMIZOLE [Suspect]
     Active Substance: METAMIZOLE
     Dosage: 19 DOSAGE FORM
     Route: 048
     Dates: start: 20230118, end: 20230118

REACTIONS (10)
  - Intentional self-injury [Unknown]
  - Hypoxia [Unknown]
  - Suicide attempt [Unknown]
  - Sopor [Recovering/Resolving]
  - Hyperglycaemia [Unknown]
  - Confusional state [Unknown]
  - Dysarthria [Unknown]
  - Taciturnity [Unknown]
  - Tachycardia [Unknown]
  - Somnolence [Unknown]

NARRATIVE: CASE EVENT DATE: 20230118
